FAERS Safety Report 4747199-5 (Version None)
Quarter: 2005Q3

REPORT INFORMATION
  Report Type: 
  Country: None (occurrence: None)
  Receive Date: 20050815
  Receipt Date: 20050221
  Transmission Date: 20060218
  Serious: Yes (Hospitalization)
  Sender: FDA-Public Use
  Company Number: MEDI-0002971

PATIENT
  Age: 18 Month

DRUGS (5)
  1. SYNAGIS [Suspect]
     Indication: ANTIVIRAL PROPHYLAXIS
     Dosage: 1.38, 1 IN 30 D, INTRAMUSCULAR
     Route: 030
     Dates: start: 20041020, end: 20050119
  2. SYNAGIS [Suspect]
     Dosage: 1.27 ML, 1 IN 30 D, INTRAMUSCULAR
     Dates: start: 20041020
  3. SYNAGIS [Suspect]
     Dosage: 1.35 ML, 1 IN 30 D, INTRAMUSCULAR
     Route: 030
     Dates: start: 20041117
  4. SYNAGIS [Suspect]
     Dosage: 1.3 ML, 1 IN 30 D, INTRAMUSCULAR
     Route: 030
     Dates: start: 20041222
  5. SYNAGIS [Suspect]
     Dosage: 1.39 ML, 1 IN 30 D, INTRAMUSCULAR
     Route: 030
     Dates: start: 20050216

REACTIONS (2)
  - OXYGEN SATURATION DECREASED [None]
  - RESPIRATORY SYNCYTIAL VIRUS INFECTION [None]
